FAERS Safety Report 21247879 (Version 2)
Quarter: 2024Q3

REPORT INFORMATION
  Report Type: Report from Study
  Country: US (occurrence: US)
  Receive Date: 20220824
  Receipt Date: 20240823
  Transmission Date: 20241017
  Serious: Yes (Other)
  Sender: ROCHE
  Company Number: US-ROCHE-3165952

PATIENT
  Sex: Female

DRUGS (2)
  1. MYCOPHENOLATE MOFETIL [Suspect]
     Active Substance: MYCOPHENOLATE MOFETIL
     Indication: Renal transplant
     Dosage: 1 BID
     Route: 065
  2. MYCOPHENOLATE MOFETIL [Suspect]
     Active Substance: MYCOPHENOLATE MOFETIL
     Dosage: 4 CAPS BID
     Route: 065

REACTIONS (1)
  - Blindness [Unknown]
